FAERS Safety Report 16410080 (Version 4)
Quarter: 2019Q3

REPORT INFORMATION
  Report Type: Spontaneous
  Country: JP (occurrence: JP)
  Receive Date: 20190610
  Receipt Date: 20190821
  Transmission Date: 20191004
  Serious: Yes (Hospitalization)
  Sender: FDA-Public Use
  Company Number: JP-009507513-1906JPN000215J

PATIENT
  Age: 65 Year
  Sex: Male

DRUGS (7)
  1. CARBOPLATIN. [Suspect]
     Active Substance: CARBOPLATIN
     Indication: NON-SMALL CELL LUNG CANCER
     Dosage: 445 MILLIGRAM
     Route: 051
     Dates: start: 20190516, end: 20190516
  2. ABRAXANE [Suspect]
     Active Substance: PACLITAXEL
     Dosage: 109 MILLIGRAM
     Route: 065
     Dates: start: 20190613, end: 20190613
  3. KEYTRUDA [Suspect]
     Active Substance: PEMBROLIZUMAB
     Indication: NON-SMALL CELL LUNG CANCER
     Dosage: 200 MILLIGRAM, Q3W
     Route: 041
     Dates: start: 20190516, end: 2019
  4. KEYTRUDA [Suspect]
     Active Substance: PEMBROLIZUMAB
     Dosage: 200 MILLIGRAM, Q3W
     Route: 041
     Dates: start: 20190620
  5. CARBOPLATIN. [Suspect]
     Active Substance: CARBOPLATIN
     Dosage: 319 MILLIGRAM (80%)
     Route: 051
     Dates: start: 20190620, end: 20190620
  6. ABRAXANE [Suspect]
     Active Substance: PACLITAXEL
     Dosage: 108 MILLIGRAM (80%)
     Route: 065
     Dates: start: 20190620, end: 20190718
  7. ABRAXANE [Suspect]
     Active Substance: PACLITAXEL
     Indication: NON-SMALL CELL LUNG CANCER
     Dosage: 136 MILLIGRAM
     Route: 065
     Dates: start: 20190516, end: 20190523

REACTIONS (1)
  - Neutrophil count decreased [Recovered/Resolved]

NARRATIVE: CASE EVENT DATE: 20190530
